FAERS Safety Report 5727125-2 (Version None)
Quarter: 2008Q2

REPORT INFORMATION
  Report Type: 
  Country: None (occurrence: None)
  Receive Date: 20080505
  Receipt Date: 20080424
  Transmission Date: 20081010
  Serious: Yes (Hospitalization)
  Sender: FDA-Public Use
  Company Number: NO-JNJFOC-20080406950

PATIENT
  Sex: Male

DRUGS (4)
  1. REMICADE [Suspect]
     Indication: ANKYLOSING SPONDYLITIS
     Dosage: TOTAL OF 7 INFUSIONS
     Route: 042
  2. VITAMIN B12 DEPOT [Concomitant]
     Route: 051
  3. VITAMIN B12 DEPOT [Concomitant]
     Indication: VITAMIN B12 DEFICIENCY
     Dosage: TOTAL OF 5 INJECTIONS
     Route: 051
  4. VOLTAREN [Concomitant]
     Indication: ANKYLOSING SPONDYLITIS
     Route: 048

REACTIONS (2)
  - IRIDOCYCLITIS [None]
  - MYELOID LEUKAEMIA [None]
